FAERS Safety Report 17584040 (Version 1)
Quarter: 2020Q1

REPORT INFORMATION
  Report Type: Spontaneous
  Country: US (occurrence: US)
  Receive Date: 20200326
  Receipt Date: 20200326
  Transmission Date: 20200409
  Serious: No
  Sender: FDA-Public Use
  Company Number: US-UNITED THERAPEUTICS-UNT-2020-004615

PATIENT
  Age: 56 Year
  Sex: Female
  Weight: 122.45 kg

DRUGS (4)
  1. SILDENAFIL CITRATE. [Suspect]
     Active Substance: SILDENAFIL CITRATE
     Indication: PRODUCT USED FOR UNKNOWN INDICATION
     Dosage: 20 MG, TID
     Route: 048
  2. REMODULIN [Suspect]
     Active Substance: TREPROSTINIL
     Indication: PULMONARY ARTERIAL HYPERTENSION
     Dosage: UNK, CONTINUING
     Route: 041
     Dates: start: 20140730
  3. XARELTO [Suspect]
     Active Substance: RIVAROXABAN
     Indication: PRODUCT USED FOR UNKNOWN INDICATION
     Dosage: UNK
     Route: 065
  4. REMODULIN [Suspect]
     Active Substance: TREPROSTINIL
     Dosage: 0.077 ?G/KG, CONTINUING
     Route: 041

REACTIONS (9)
  - Seasonal allergy [Unknown]
  - Decreased appetite [Unknown]
  - Haemorrhage [Unknown]
  - Dyspnoea [Unknown]
  - Device use error [Unknown]
  - Nasopharyngitis [Unknown]
  - Infection [Unknown]
  - Device infusion issue [Unknown]
  - Device breakage [Unknown]

NARRATIVE: CASE EVENT DATE: 20200319
